FAERS Safety Report 15764849 (Version 3)
Quarter: 2019Q1

REPORT INFORMATION
  Report Type: Spontaneous
  Country: CA (occurrence: CA)
  Receive Date: 20181227
  Receipt Date: 20190329
  Transmission Date: 20190417
  Serious: Yes (Other)
  Sender: FDA-Public Use
  Company Number: CA-CELLTRION INC.-2018CA022169

PATIENT

DRUGS (9)
  1. INFLECTRA [Suspect]
     Active Substance: INFLIXIMAB-DYYB
     Dosage: 3 MG/KG WEEK 0, 2, 6 WEEKS, THEN EVERY 8 WEEKS;
     Route: 042
     Dates: start: 20181217
  2. MELOXICAM. [Concomitant]
     Active Substance: MELOXICAM
     Dosage: UNK
  3. INFLECTRA [Suspect]
     Active Substance: INFLIXIMAB-DYYB
     Dosage: 3 MG/KG WEEK 0, 2, 6 WEEKS, THEN EVERY 8 WEEKS;
     Route: 042
     Dates: start: 20180910
  4. INFLECTRA [Suspect]
     Active Substance: INFLIXIMAB-DYYB
     Dosage: 3 MG/KG WEEK 0, 2, 6 WEEKS, THEN EVERY 8 WEEKS;
     Route: 042
     Dates: start: 20181026
  5. INFLECTRA [Suspect]
     Active Substance: INFLIXIMAB-DYYB
     Dosage: 3 MG/KG WEEK 0, 2, 6 WEEKS, THEN EVERY 8 WEEKS;
     Route: 042
     Dates: start: 20190215
  6. METHOTREXATE. [Concomitant]
     Active Substance: METHOTREXATE
     Dosage: ON HOLD
  7. SULFASALAZINE. [Concomitant]
     Active Substance: SULFASALAZINE
     Dosage: UNK
  8. INFLECTRA [Suspect]
     Active Substance: INFLIXIMAB-DYYB
     Indication: PSORIATIC ARTHROPATHY
     Dosage: 3 MG/KG WEEK 0, 2, 6 WEEKS, THEN EVERY 8 WEEKS;
     Route: 042
     Dates: start: 20180827
  9. LEUCOVORIN [CALCIUM FOLINATE] [Concomitant]
     Active Substance: LEUCOVORIN
     Dosage: UNK

REACTIONS (14)
  - Heart rate irregular [Unknown]
  - Rhinorrhoea [Not Recovered/Not Resolved]
  - Cough [Not Recovered/Not Resolved]
  - Neutrophil count decreased [Unknown]
  - Spinal compression fracture [Unknown]
  - White blood cell count decreased [Unknown]
  - Prescribed underdose [Unknown]
  - Drug effect incomplete [Recovering/Resolving]
  - Nasopharyngitis [Not Recovered/Not Resolved]
  - Dehydration [Unknown]
  - Pain [Not Recovered/Not Resolved]
  - Fatigue [Not Recovered/Not Resolved]
  - Dry eye [Not Recovered/Not Resolved]
  - Head discomfort [Not Recovered/Not Resolved]

NARRATIVE: CASE EVENT DATE: 2018
